FAERS Safety Report 24863720 (Version 2)
Quarter: 2025Q2

REPORT INFORMATION
  Report Type: Spontaneous
  Country: US (occurrence: US)
  Receive Date: 20250120
  Receipt Date: 20250418
  Transmission Date: 20250717
  Serious: No
  Sender: Phathom Pharmaceuticals
  Company Number: US-PHATHOM PHARMACEUTICALS INC.-2024PHT01397

PATIENT
  Age: 77 Year
  Sex: Female
  Weight: 85.17 kg

DRUGS (12)
  1. VOQUEZNA [Suspect]
     Active Substance: VONOPRAZAN FUMARATE
     Indication: Erosive oesophagitis
     Dosage: 20 MG, 1X/DAY
     Route: 048
     Dates: start: 20241102
  2. VOQUEZNA [Suspect]
     Active Substance: VONOPRAZAN FUMARATE
     Indication: Gastrooesophageal reflux disease
  3. TAVABOROLE [Concomitant]
     Active Substance: TAVABOROLE
  4. LATANOPROST [Concomitant]
     Active Substance: LATANOPROST
  5. ESTRADIOL [Concomitant]
     Active Substance: ESTRADIOL
  6. AMOXICILLIN [Concomitant]
     Active Substance: AMOXICILLIN
  7. SYNTHROID [Concomitant]
     Active Substance: LEVOTHYROXINE SODIUM
  8. MAGNESIUM [Concomitant]
     Active Substance: MAGNESIUM
  9. VITAMINS NOS [Concomitant]
     Active Substance: VITAMINS
  10. ZINC [Concomitant]
     Active Substance: ZINC
  11. VITAMIN D NOS [Concomitant]
     Active Substance: CHOLECALCIFEROL\ERGOCALCIFEROL
  12. VITAMIN C-MULTIVITAMIN-MINERAL [Concomitant]

REACTIONS (4)
  - Influenza [Unknown]
  - Cough [Not Recovered/Not Resolved]
  - Faeces soft [Not Recovered/Not Resolved]
  - Diarrhoea [Not Recovered/Not Resolved]

NARRATIVE: CASE EVENT DATE: 20241101
